FAERS Safety Report 12684910 (Version 2)
Quarter: 2016Q3

REPORT INFORMATION
  Report Type: Spontaneous
  Country: FR (occurrence: FR)
  Receive Date: 20160825
  Receipt Date: 20160909
  Transmission Date: 20161109
  Serious: Yes (Hospitalization, Other)
  Sender: FDA-Public Use
  Company Number: FR-TEVA-686675ROM

PATIENT
  Age: 21 Year
  Sex: Male
  Weight: 75 kg

DRUGS (7)
  1. ALKERAN [Suspect]
     Active Substance: MELPHALAN
     Indication: HODGKIN^S DISEASE
     Dosage: 270 MILLIGRAM DAILY;
     Route: 042
     Dates: start: 20160222, end: 20160222
  2. ETOPOSIDE TEVA 20 MG/ML [Suspect]
     Active Substance: ETOPOSIDE
     Dosage: 390 MILLIGRAM DAILY;
     Route: 041
     Dates: start: 20160218, end: 20160221
  3. LEVACT 2.5 MG/ML [Suspect]
     Active Substance: BENDAMUSTINE HYDROCHLORIDE
     Dosage: 390 MILLIGRAM DAILY;
     Route: 041
     Dates: start: 20160216, end: 20160217
  4. ONDANSETRON ACCORD 2 MG/ML [Concomitant]
     Active Substance: ONDANSETRON
     Indication: PROPHYLAXIS OF NAUSEA AND VOMITING
  5. EMEND [Concomitant]
     Active Substance: APREPITANT
     Indication: PROPHYLAXIS OF NAUSEA AND VOMITING
  6. CYTARABINE SANDOZ 100 MG/ML [Suspect]
     Active Substance: CYTARABINE
     Indication: HODGKIN^S DISEASE
     Dosage: 780 MILLIGRAM DAILY;
     Route: 041
     Dates: start: 20160218, end: 20160221
  7. METHYLPREDNISOLONE MYLAN [Concomitant]
     Active Substance: METHYLPREDNISOLONE
     Indication: PROPHYLAXIS OF NAUSEA AND VOMITING

REACTIONS (4)
  - Pyrexia [Recovered/Resolved]
  - Stomatitis [Recovered/Resolved]
  - Off label use [Unknown]
  - Bone marrow failure [Recovered/Resolved]

NARRATIVE: CASE EVENT DATE: 20160227
